FAERS Safety Report 5707394-5 (Version None)
Quarter: 2008Q2

REPORT INFORMATION
  Report Type: 
  Country: None (occurrence: None)
  Receive Date: 20080416
  Receipt Date: 20080410
  Transmission Date: 20081010
  Serious: Yes (Hospitalization)
  Sender: FDA-Public Use
  Company Number: KR-BOEHRINGER INGELHEIM GMBH, GERMANY-2008-BP-05881YA

PATIENT
  Age: 58 Year
  Sex: Male

DRUGS (3)
  1. TAMSULOSIN HCL [Suspect]
     Route: 048
     Dates: start: 20071211, end: 20071212
  2. TOLTERODINE TARTRATE [Suspect]
     Route: 048
     Dates: start: 20071016, end: 20071030
  3. TOLTERODINE TARTRATE [Suspect]
     Route: 048
     Dates: start: 20071211, end: 20071212

REACTIONS (1)
  - STEVENS-JOHNSON SYNDROME [None]
